FAERS Safety Report 7993472-7 (Version None)
Quarter: 2011Q4

REPORT INFORMATION
  Report Type: 
  Country: None (occurrence: None)
  Receive Date: 20111219
  Receipt Date: 20111212
  Transmission Date: 20120403
  Serious: Yes (Other)
  Sender: FDA-Public Use
  Company Number: CHPA2011US017877

PATIENT
  Sex: Female

DRUGS (2)
  1. EXCEDRIN TENSION HEADACHE [Suspect]
     Indication: HEADACHE
     Dosage: 2-4 DF, QD
     Route: 048
     Dates: start: 20030101
  2. SYNTHROID [Concomitant]
     Indication: THYROID DISORDER
     Dosage: 0.75 MG, UNK

REACTIONS (4)
  - OFF LABEL USE [None]
  - SYSTEMIC LUPUS ERYTHEMATOSUS [None]
  - THERAPEUTIC RESPONSE UNEXPECTED [None]
  - TYPE 2 DIABETES MELLITUS [None]
